FAERS Safety Report 10568282 (Version 1)
Quarter: 2014Q4

REPORT INFORMATION
  Report Type: Spontaneous
  Country: US (occurrence: None)
  Receive Date: 20141024
  Receipt Date: 20141024
  Transmission Date: 20150529
  Serious: No
  Sender: FDA-Public Use
  Company Number: 1448223

PATIENT
  Age: 58 Year
  Sex: Male

DRUGS (3)
  1. PRED FORTE (PREDNISIONE ACETATE) [Concomitant]
  2. TIMOLOL (TIMOLOL) [Concomitant]
  3. ZELBORAF [Suspect]
     Active Substance: VEMURAFENIB

REACTIONS (2)
  - Iris adhesions [None]
  - Iritis [None]
